FAERS Safety Report 6113673-2 (Version None)
Quarter: 2009Q1

REPORT INFORMATION
  Report Type: 
  Country: None (occurrence: None)
  Receive Date: 20090312
  Receipt Date: 20090305
  Transmission Date: 20090719
  Serious: Yes (Hospitalization)
  Sender: FDA-Public Use
  Company Number: PHBS2009IL01029

PATIENT

DRUGS (2)
  1. METOPROLOL TARTRATE [Suspect]
     Dosage: 50 MG, BID
     Route: 064
  2. METOPROLOL TARTRATE [Suspect]
     Dosage: 100 MG, BID

REACTIONS (2)
  - DRUG EXPOSURE DURING PREGNANCY [None]
  - PREMATURE BABY [None]
